FAERS Safety Report 5715887-X (Version None)
Quarter: 2008Q2

REPORT INFORMATION
  Report Type: 
  Country: None (occurrence: None)
  Receive Date: 20080424
  Receipt Date: 20080414
  Transmission Date: 20081010
  Serious: Yes (Other)
  Sender: FDA-Public Use
  Company Number: US-ROCHE-551445

PATIENT
  Sex: Female

DRUGS (1)
  1. TAMIFLU [Suspect]
     Dosage: PATIENT RECEIVED ONLY ONE DOSE
     Route: 065
     Dates: start: 20080220

REACTIONS (3)
  - GASTRITIS [None]
  - GASTROOESOPHAGEAL REFLUX DISEASE [None]
  - VOMITING [None]
